FAERS Safety Report 14455251 (Version 2)
Quarter: 2018Q1

REPORT INFORMATION
  Report Type: Spontaneous
  Country: US (occurrence: US)
  Receive Date: 20180129
  Receipt Date: 20180209
  Transmission Date: 20180509
  Serious: Yes (Other)
  Sender: FDA-Public Use
  Company Number: US-009507513-1801USA007946

PATIENT
  Age: 21 Year
  Sex: Female
  Weight: 102.95 kg

DRUGS (2)
  1. NEXPLANON [Suspect]
     Active Substance: ETONOGESTREL
     Indication: CONTRACEPTION
     Dosage: 1 DF
     Route: 059
     Dates: start: 20180110, end: 20180118
  2. NEXPLANON [Suspect]
     Active Substance: ETONOGESTREL
     Dosage: PREVIOUS NEXPLANON FOR 3 YEARS
     Route: 059
     Dates: start: 201501, end: 20180118

REACTIONS (3)
  - Implant site pruritus [Recovered/Resolved]
  - Cellulitis [Recovered/Resolved]
  - Hypersensitivity [Unknown]

NARRATIVE: CASE EVENT DATE: 201801
